FAERS Safety Report 9804992 (Version 1)
Quarter: 2014Q1

REPORT INFORMATION
  Report Type: Spontaneous
  Country: US (occurrence: US)
  Receive Date: 20140109
  Receipt Date: 20140109
  Transmission Date: 20141002
  Serious: Yes (Death)
  Sender: FDA-Public Use
  Company Number: US-BAYER-2014-002611

PATIENT
  Age: 50 Year
  Sex: Female

DRUGS (9)
  1. DEXTROMETHORPHAN (ROMILAR, XINLI) +/- GUAIFENESIN [Suspect]
  2. DIPHENHYDRAMINE HYDROCHLORIDE [Suspect]
  3. HEROIN [Suspect]
  4. COCAINE [Suspect]
  5. TRAMADOL [Suspect]
  6. CITALOPRAM [Suspect]
  7. HYDROXYZINE [Suspect]
  8. QUININE [Suspect]
  9. ETHANOL [Suspect]

REACTIONS (1)
  - Drug abuse [Fatal]
